FAERS Safety Report 11946321 (Version 2)
Quarter: 2016Q1

REPORT INFORMATION
  Report Type: Spontaneous
  Country: US (occurrence: US)
  Receive Date: 20160125
  Receipt Date: 20160204
  Transmission Date: 20160526
  Serious: Yes (Other)
  Sender: FDA-Public Use
  Company Number: US-MALLINCKRODT-T201600125

PATIENT
  Age: 3 Month
  Sex: Male

DRUGS (10)
  1. INOMAX [Suspect]
     Active Substance: NITRIC OXIDE
     Dosage: 15PPM, CONTINUOUS
     Dates: start: 201512, end: 201512
  2. HYPERTONIC SALINE SOLUTION [Concomitant]
     Active Substance: SODIUM CHLORIDE
  3. INOMAX [Suspect]
     Active Substance: NITRIC OXIDE
     Dosage: 5PPM CONTINUOUS
     Dates: start: 201512, end: 201512
  4. INOMAX [Suspect]
     Active Substance: NITRIC OXIDE
     Dosage: 1 PPM, CONTINUOUS
     Dates: start: 201512, end: 20151217
  5. ZOSYN [Concomitant]
     Active Substance: PIPERACILLIN SODIUM\TAZOBACTAM SODIUM
     Indication: PRODUCT USED FOR UNKNOWN INDICATION
     Dosage: UNKNOWN
  6. INOMAX [Suspect]
     Active Substance: NITRIC OXIDE
     Indication: HYPOXIA
     Dosage: 20 PPM, CONTINUOUS
     Dates: start: 20151123, end: 201512
  7. INOMAX [Suspect]
     Active Substance: NITRIC OXIDE
     Dosage: 10 PPM, CONTINUOUS
     Dates: start: 201512, end: 201512
  8. INOMAX [Suspect]
     Active Substance: NITRIC OXIDE
     Dosage: 4 PPM, CONTINUOUS
     Dates: start: 201512, end: 201512
  9. INOMAX [Suspect]
     Active Substance: NITRIC OXIDE
     Dosage: 2PPM, CONTINUOUS
     Dates: start: 201512, end: 201512
  10. INOMAX [Suspect]
     Active Substance: NITRIC OXIDE
     Dosage: 3PPM, CONTINUOUS
     Dates: start: 201512, end: 201512

REACTIONS (3)
  - Off label use [Unknown]
  - Stenotrophomonas infection [Not Recovered/Not Resolved]
  - Pyrexia [Unknown]

NARRATIVE: CASE EVENT DATE: 20151212
